FAERS Safety Report 15060136 (Version 3)
Quarter: 2019Q4

REPORT INFORMATION
  Report Type: Report from Study
  Country: US (occurrence: US)
  Receive Date: 20180625
  Receipt Date: 20191104
  Transmission Date: 20200122
  Serious: Yes (Hospitalization)
  Sender: FDA-Public Use
  Company Number: US-CELGENEUS-USA-20180606969

PATIENT
  Age: 2 Year
  Sex: Male
  Weight: 10 kg

DRUGS (24)
  1. AZACITIDINE. [Suspect]
     Active Substance: AZACITIDINE
     Dosage: 50 MILLIGRAM/SQ. METER
     Route: 041
     Dates: start: 20180418, end: 20180427
  2. VENETOCLAX. [Suspect]
     Active Substance: VENETOCLAX
     Indication: ACUTE MYELOID LEUKAEMIA
     Route: 048
     Dates: start: 20180328, end: 20180328
  3. CYTARABINE. [Suspect]
     Active Substance: CYTARABINE
     Route: 065
     Dates: start: 20171228, end: 20180318
  4. HYDROCORTISONE SODIUM SUCCINATE [Concomitant]
     Active Substance: HYDROCORTISONE SODIUM SUCCINATE
     Dosage: 16 MILLIGRAM
     Route: 037
     Dates: start: 20180417, end: 20180417
  5. METHOTREXATE SODIUM. [Concomitant]
     Active Substance: METHOTREXATE SODIUM
     Route: 065
     Dates: start: 20171129, end: 20171206
  6. VENETOCLAX. [Suspect]
     Active Substance: VENETOCLAX
     Dosage: 80 MILLIGRAM
     Route: 048
     Dates: start: 20180329, end: 20180329
  7. VENETOCLAX. [Suspect]
     Active Substance: VENETOCLAX
     Dosage: 150 MILLIGRAM
     Route: 048
     Dates: start: 20180330, end: 20180417
  8. VANCOMYCIN HYDROCHLORIDE. [Concomitant]
     Active Substance: VANCOMYCIN HYDROCHLORIDE
     Indication: FEBRILE NEUTROPENIA
     Dosage: 450 MILLIGRAM
     Route: 041
     Dates: start: 20180516
  9. METHOTREXATE SODIUM. [Concomitant]
     Active Substance: METHOTREXATE SODIUM
     Dosage: 8 MILLIGRAM
     Route: 037
     Dates: start: 20180417, end: 20180417
  10. SODIUM CHLORIDE. [Concomitant]
     Active Substance: SODIUM CHLORIDE
     Indication: PROPHYLAXIS
     Dosage: 500 MILLILITER
     Route: 041
     Dates: start: 20180327, end: 20180331
  11. DARATUMUMAB [Concomitant]
     Active Substance: DARATUMUMAB
     Indication: ACUTE MYELOID LEUKAEMIA
     Route: 065
     Dates: start: 20171110, end: 20171124
  12. CYTARABINE. [Suspect]
     Active Substance: CYTARABINE
     Dosage: 24 MILLIGRAM
     Route: 065
     Dates: start: 20180417, end: 20180417
  13. ALLOPURINOL SODIUM. [Concomitant]
     Active Substance: ALLOPURINOL SODIUM
     Indication: PROPHYLAXIS
     Dosage: 50 MILLIGRAM
     Route: 065
     Dates: start: 20180327, end: 20180331
  14. CYTARABINE. [Suspect]
     Active Substance: CYTARABINE
     Route: 065
     Dates: start: 20171129, end: 20171206
  15. MICAFUNGIN. [Concomitant]
     Active Substance: MICAFUNGIN SODIUM
     Indication: PROPHYLAXIS
     Dosage: 30 MILLIGRAM
     Route: 041
     Dates: start: 20180320
  16. HYDROCORTISONE SODIUM SUCCINATE [Concomitant]
     Active Substance: HYDROCORTISONE SODIUM SUCCINATE
     Indication: HYPERSENSITIVITY
     Dosage: 25 MILLIGRAM
     Route: 041
     Dates: start: 20180412, end: 20180412
  17. CYTARABINE. [Suspect]
     Active Substance: CYTARABINE
     Indication: ACUTE MYELOID LEUKAEMIA
     Route: 065
     Dates: start: 20171110, end: 20171124
  18. METHOTREXATE SODIUM. [Concomitant]
     Active Substance: METHOTREXATE SODIUM
     Indication: ACUTE MYELOID LEUKAEMIA
     Route: 065
     Dates: start: 20171110, end: 20171124
  19. AZACITIDINE. [Suspect]
     Active Substance: AZACITIDINE
     Indication: ACUTE MYELOID LEUKAEMIA
     Route: 041
     Dates: start: 20171228, end: 20180318
  20. VENETOCLAX. [Suspect]
     Active Substance: VENETOCLAX
     Dosage: 75 MILLIGRAM
     Route: 048
     Dates: start: 20180418, end: 20180508
  21. FLUDARABINE [Concomitant]
     Active Substance: FLUDARABINE PHOSPHATE
     Indication: ACUTE MYELOID LEUKAEMIA
     Route: 065
     Dates: start: 20180516
  22. METHOTREXATE SODIUM. [Concomitant]
     Active Substance: METHOTREXATE SODIUM
     Route: 065
     Dates: start: 20171228, end: 20180418
  23. ALLOPURINOL SODIUM. [Concomitant]
     Active Substance: ALLOPURINOL SODIUM
     Dosage: 50 MILLIGRAM
     Route: 065
     Dates: start: 20180418, end: 20180420
  24. SODIUM CHLORIDE. [Concomitant]
     Active Substance: SODIUM CHLORIDE
     Dosage: 100 MILLILITER
     Route: 041
     Dates: start: 20180418, end: 20180420

REACTIONS (2)
  - Hypertension [Not Recovered/Not Resolved]
  - Febrile neutropenia [Not Recovered/Not Resolved]

NARRATIVE: CASE EVENT DATE: 20180525
